FAERS Safety Report 7342506-1 (Version None)
Quarter: 2011Q1

REPORT INFORMATION
  Report Type: 
  Country: None (occurrence: None)
  Receive Date: 20110310
  Receipt Date: 20110304
  Transmission Date: 20110831
  Serious: No
  Sender: FDA-Public Use
  Company Number: US-PFIZER INC-2011047995

PATIENT
  Sex: Female
  Weight: 58.957 kg

DRUGS (2)
  1. AMLODIPINE BESYLATE [Suspect]
     Indication: BLOOD PRESSURE INCREASED
     Dosage: 10 MG, DAILY
     Route: 048
     Dates: start: 20100501
  2. WARFARIN [Concomitant]

REACTIONS (1)
  - ALOPECIA [None]
